FAERS Safety Report 6242866-9 (Version None)
Quarter: 2009Q2

REPORT INFORMATION
  Report Type: 
  Country: None (occurrence: None)
  Receive Date: 20090624
  Receipt Date: 20090609
  Transmission Date: 20091009
  Serious: Yes (Life-Threatening, Hospitalization)
  Sender: FDA-Public Use
  Company Number: B0580110A

PATIENT
  Sex: Male

DRUGS (7)
  1. ARTIST [Suspect]
     Indication: ATRIAL FIBRILLATION
     Dosage: 5MG PER DAY
     Route: 048
     Dates: start: 20050831, end: 20081203
  2. ALOSITOL [Suspect]
     Dosage: 100MG TWICE PER DAY
     Route: 048
     Dates: start: 20061227, end: 20081203
  3. OLMETEC [Suspect]
     Indication: HYPERTENSION
     Dosage: 20MG TWICE PER DAY
     Route: 048
     Dates: start: 20060712, end: 20081203
  4. VASOLAN [Suspect]
     Indication: ATRIAL FIBRILLATION
     Dosage: 40MG TWICE PER DAY
     Route: 048
     Dates: start: 20081201, end: 20081203
  5. TAMBOCOR [Suspect]
     Indication: ATRIAL FIBRILLATION
     Dosage: 150MG THREE TIMES PER DAY
     Route: 048
     Dates: start: 20081201, end: 20081203
  6. SIMVASTATIN [Concomitant]
     Dates: start: 20061227, end: 20081203
  7. WARFARIN SODIUM [Concomitant]
     Dates: end: 20081203

REACTIONS (3)
  - HYPERKALAEMIA [None]
  - RENAL FAILURE ACUTE [None]
  - SINUS ARREST [None]
